FAERS Safety Report 7912886-4 (Version None)
Quarter: 2011Q4

REPORT INFORMATION
  Report Type: 
  Country: None (occurrence: None)
  Receive Date: 20111114
  Receipt Date: 20111104
  Transmission Date: 20120403
  Serious: Yes (Death, Other)
  Sender: FDA-Public Use
  Company Number: US-BAYER-201011553NA

PATIENT
  Age: 68 Year
  Sex: Male

DRUGS (7)
  1. FERROUS GLUCONATE [Concomitant]
     Dosage: 375 MG, QD
     Route: 048
  2. TIMOLOL MALEATE [Concomitant]
     Dosage: 1 DROP, BID
  3. CALCITRIOL [Concomitant]
     Dosage: 0.25 MG, QOD
     Route: 048
  4. TRASYLOL [Suspect]
     Indication: CORONARY ARTERY BYPASS
     Dosage: UNK
     Route: 042
     Dates: start: 20070501
  5. ROSIGLITAZONE MALEATE [Concomitant]
     Dosage: 8 MG, QD
     Route: 048
  6. GLIPIZIDE [Concomitant]
     Dosage: 10 MG, QD
     Route: 048
  7. HELIAC THERAPY [Concomitant]
     Dosage: 4 TABS, QD

REACTIONS (14)
  - FEAR [None]
  - RENAL IMPAIRMENT [None]
  - CARDIAC DISORDER [None]
  - DEATH [None]
  - PAIN [None]
  - DEPRESSION [None]
  - ANHEDONIA [None]
  - INJURY [None]
  - ORGAN FAILURE [None]
  - ANXIETY [None]
  - CEREBROVASCULAR ACCIDENT [None]
  - RENAL FAILURE [None]
  - RENAL INJURY [None]
  - UNEVALUABLE EVENT [None]
